FAERS Safety Report 19247775 (Version 2)
Quarter: 2021Q2

REPORT INFORMATION
  Report Type: Spontaneous
  Country: TR (occurrence: TR)
  Receive Date: 20210512
  Receipt Date: 20210528
  Transmission Date: 20210717
  Serious: Yes (Other)
  Sender: FDA-Public Use
  Company Number: TR-SA-2021SA151970

PATIENT
  Age: 67 Year

DRUGS (2)
  1. AFLIBERCEPT [Suspect]
     Active Substance: AFLIBERCEPT
     Indication: NEOVASCULAR AGE-RELATED MACULAR DEGENERATION
  2. AFLIBERCEPT [Suspect]
     Active Substance: AFLIBERCEPT
     Indication: ANTIANGIOGENIC THERAPY
     Dosage: 2 MG (4 INJECTIONS)
     Route: 031

REACTIONS (6)
  - Eye inflammation [Recovered/Resolved]
  - Vitritis [Recovered/Resolved]
  - Anterior chamber flare [Recovered/Resolved]
  - Vision blurred [Recovered/Resolved]
  - Vitreous opacities [Recovered/Resolved]
  - Visual acuity reduced [Recovered/Resolved]
